FAERS Safety Report 4531675-4 (Version None)
Quarter: 2004Q4

REPORT INFORMATION
  Report Type: 
  Country: None (occurrence: None)
  Receive Date: 20041216
  Receipt Date: 20041216
  Transmission Date: 20050328
  Serious: Yes (Hospitalization)
  Sender: FDA-Public Use
  Company Number: None

PATIENT
  Age: 54 Year
  Sex: Male
  Weight: 73.4827 kg

DRUGS (7)
  1. DILANTIN [Suspect]
     Indication: CONVULSION
     Dosage: PO TID
     Route: 048
  2. VALPROIC ACID [Concomitant]
  3. ATIVAN [Concomitant]
  4. ALBUTEROL [Concomitant]
  5. AMOXIL [Concomitant]
  6. METHADONE HCL [Concomitant]
  7. PHENOBARBITAL TAB [Concomitant]

REACTIONS (3)
  - ASTHENIA [None]
  - OESOPHAGEAL SPASM [None]
  - VOMITING [None]
